FAERS Safety Report 4402661-X (Version None)
Quarter: 2004Q3

REPORT INFORMATION
  Report Type: 
  Country: None (occurrence: None)
  Receive Date: 20040715
  Receipt Date: 20040707
  Transmission Date: 20050211
  Serious: Yes (Other)
  Sender: FDA-Public Use
  Company Number: 2004-07-0364

PATIENT
  Age: 61 Year
  Sex: Female

DRUGS (1)
  1. NASONEX [Suspect]
     Indication: HYPERSENSITIVITY
     Dosage: 100 MCG QD NASAL SPRAY
     Route: 045
     Dates: start: 20040601, end: 20040601

REACTIONS (2)
  - AGEUSIA [None]
  - ANOSMIA [None]
